FAERS Safety Report 4297176-6 (Version None)
Quarter: 2004Q1

REPORT INFORMATION
  Report Type: 
  Country: None (occurrence: None)
  Receive Date: 20040213
  Receipt Date: 20040206
  Transmission Date: 20041129
  Serious: Yes (Hospitalization)
  Sender: FDA-Public Use
  Company Number: 2004-02-0543

PATIENT
  Sex: Female

DRUGS (2)
  1. PEG-INTRON [Suspect]
     Indication: HEPATITIS
     Dosage: UNKNOWN; SUBCUTANEOUS
     Route: 058
     Dates: start: 20020901, end: 20021101
  2. REBETOL [Suspect]
     Indication: HEPATITIS
     Dosage: UNKNOWN; ORAL
     Route: 048
     Dates: start: 20020901, end: 20021101

REACTIONS (3)
  - DEHYDRATION [None]
  - NAUSEA [None]
  - VOMITING [None]
